FAERS Safety Report 10592790 (Version 1)
Quarter: 2014Q4

REPORT INFORMATION
  Report Type: Spontaneous
  Country: DE (occurrence: None)
  Receive Date: 20141117
  Receipt Date: 20141117
  Transmission Date: 20150529
  Serious: Yes (Hospitalization)
  Sender: FDA-Public Use
  Company Number: DE-017044

PATIENT
  Age: 80 Year
  Sex: Female

DRUGS (3)
  1. PICOPREP [Suspect]
     Active Substance: CITRIC ACID MONOHYDRATE\MAGNESIUM OXIDE\SODIUM PICOSULFATE
     Indication: BOWEL PREPARATION
     Dosage: 2 SACHETS TOTAL
     Dates: start: 20140604, end: 20140605
  2. NEBIVOLOL [Concomitant]
     Active Substance: NEBIVOLOL
  3. BLOPRESS [Concomitant]
     Active Substance: CANDESARTAN CILEXETIL

REACTIONS (7)
  - Seizure [None]
  - Dehydration [None]
  - Vomiting projectile [None]
  - Hyponatraemia [None]
  - Depressed level of consciousness [None]
  - Disturbance in attention [None]
  - Delirium [None]

NARRATIVE: CASE EVENT DATE: 20140604
